FAERS Safety Report 7088890-8 (Version None)
Quarter: 2010Q4

REPORT INFORMATION
  Report Type: 
  Country: None (occurrence: None)
  Receive Date: 20101108
  Receipt Date: 20100706
  Transmission Date: 20110411
  Serious: Yes (Death, Hospitalization)
  Sender: FDA-Public Use
  Company Number: JP-PFIZER INC-2010075505

PATIENT
  Age: 69 Year
  Sex: Female

DRUGS (1)
  1. SUTENT [Suspect]
     Indication: RENAL CELL CARCINOMA
     Dosage: 37.5 MG, 1X/DAY
     Route: 048
     Dates: start: 20100601, end: 20100617

REACTIONS (4)
  - DISEASE PROGRESSION [None]
  - GUILLAIN-BARRE SYNDROME [None]
  - RENAL CELL CARCINOMA [None]
  - TUMOUR LYSIS SYNDROME [None]
